FAERS Safety Report 20070732 (Version 1)
Quarter: 2021Q4

REPORT INFORMATION
  Report Type: Spontaneous
  Country: US (occurrence: None)
  Receive Date: 20211115
  Receipt Date: 20211115
  Transmission Date: 20220303
  Serious: Yes (Hospitalization)
  Sender: FDA-Public Use
  Company Number: None

PATIENT
  Age: 83 Year
  Weight: 111.6 kg

DRUGS (21)
  1. ABIRATERONE [Suspect]
     Active Substance: ABIRATERONE
     Indication: Prostate cancer
     Dosage: FREQUENCY : DAILY;?
     Route: 048
     Dates: start: 20211023
  2. PFIZER-BIONTECH COVID-19 VACCINE [Concomitant]
     Active Substance: TOZINAMERAN
  3. ATORVASTATIN [Concomitant]
     Active Substance: ATORVASTATIN
  4. potasssium chloride [Concomitant]
  5. KETOCONAZOLE [Concomitant]
     Active Substance: KETOCONAZOLE
  6. LUPRON [Concomitant]
     Active Substance: LEUPROLIDE ACETATE
  7. METOLAZONE [Concomitant]
     Active Substance: METOLAZONE
  8. CARVEDILOL [Concomitant]
     Active Substance: CARVEDILOL
  9. ALENDRONATE [Concomitant]
     Active Substance: ALENDRONATE SODIUM
  10. FUROSEMIDE [Concomitant]
     Active Substance: FUROSEMIDE
  11. MONTELUKAST [Concomitant]
     Active Substance: MONTELUKAST SODIUM
  12. ASPIRIN [Concomitant]
     Active Substance: ASPIRIN
  13. SPIRIVA [Concomitant]
     Active Substance: TIOTROPIUM BROMIDE MONOHYDRATE
  14. NITROSTAT [Concomitant]
     Active Substance: NITROGLYCERIN
  15. VITAMINS [Concomitant]
     Active Substance: VITAMINS
  16. BUDESONIDE\FORMOTEROL [Concomitant]
     Active Substance: BUDESONIDE\FORMOTEROL
  17. CALCIUM [Concomitant]
     Active Substance: CALCIUM
  18. FISH OIL [Concomitant]
     Active Substance: FISH OIL
  19. move free joint health advance [Concomitant]
  20. DICLOFENAC [Concomitant]
     Active Substance: DICLOFENAC
  21. LOSARTAN [Concomitant]
     Active Substance: LOSARTAN

REACTIONS (1)
  - Hospitalisation [None]

NARRATIVE: CASE EVENT DATE: 20211115
